FAERS Safety Report 8312287-3 (Version None)
Quarter: 2012Q2

REPORT INFORMATION
  Report Type: 
  Country: None (occurrence: None)
  Receive Date: 20120425
  Receipt Date: 20120413
  Transmission Date: 20120825
  Serious: Yes (Hospitalization, Other)
  Sender: FDA-Public Use
  Company Number: US-ROCHE-1059632

PATIENT
  Sex: Male
  Weight: 92 kg

DRUGS (15)
  1. MABTHERA [Suspect]
     Indication: MULTIPLE MYELOMA
     Route: 042
     Dates: start: 20110512, end: 20110512
  2. CEFEPIME [Suspect]
     Indication: PYREXIA
     Route: 042
     Dates: start: 20110603, end: 20110606
  3. ATENOLOL [Concomitant]
  4. ASPIRIN [Concomitant]
  5. FAMVIR [Concomitant]
  6. COLCHICINE [Concomitant]
  7. NEURONTIN [Concomitant]
  8. ATIVAN [Concomitant]
  9. MEROPENEM [Suspect]
     Indication: PYREXIA
     Route: 042
  10. METRONIDAZOLE [Suspect]
     Indication: PROPHYLAXIS
     Route: 048
     Dates: start: 20110606, end: 20110618
  11. SEROQUEL [Concomitant]
  12. ALLOPURINOL [Concomitant]
  13. FENTANYL-100 [Concomitant]
  14. DILAUDID [Concomitant]
  15. IBRITUMOMAB TIUXETAN [Suspect]
     Indication: MULTIPLE MYELOMA
     Route: 042
     Dates: start: 20110512, end: 20110512

REACTIONS (11)
  - HYPOAESTHESIA [None]
  - FEBRILE NEUTROPENIA [None]
  - BACK PAIN [None]
  - DIARRHOEA [None]
  - IMPLANT SITE WARMTH [None]
  - PERIRECTAL ABSCESS [None]
  - PYREXIA [None]
  - ERYTHEMA [None]
  - RASH ERYTHEMATOUS [None]
  - RASH MACULAR [None]
  - CHILLS [None]
